FAERS Safety Report 17514801 (Version 1)
Quarter: 2020Q1

REPORT INFORMATION
  Report Type: Spontaneous
  Country: GB (occurrence: GB)
  Receive Date: 20200309
  Receipt Date: 20200309
  Transmission Date: 20200409
  Serious: Yes (Hospitalization)
  Sender: FDA-Public Use
  Company Number: GB-TEVA-2020-GB-1195392

PATIENT
  Age: 75 Year
  Sex: Male

DRUGS (5)
  1. CO-BENELDOPA [Concomitant]
     Active Substance: BENSERAZIDE HYDROCHLORIDE\LEVODOPA
     Dosage: 50MG/200MG, 3 DF
     Route: 048
  2. CLONAZEPAM. [Concomitant]
     Active Substance: CLONAZEPAM
     Dosage: AT NIGHT, 500 MG
  3. DONEPEZIL. [Suspect]
     Active Substance: DONEPEZIL
     Dosage: 10 MG
     Route: 048
  4. BISACODYL. [Concomitant]
     Active Substance: BISACODYL
     Dosage: 2-4 TABLETS DAILY
  5. FLUTICASONE FUROATE [Concomitant]
     Active Substance: FLUTICASONE FUROATE
     Dosage: 27.5 MICROGRAMS/DOSE, 2 DF
     Route: 045

REACTIONS (2)
  - Bradycardia [Recovering/Resolving]
  - Circulatory collapse [Recovering/Resolving]
